FAERS Safety Report 9726528 (Version 4)
Quarter: 2013Q4

REPORT INFORMATION
  Report Type: Spontaneous
  Country: DE (occurrence: None)
  Receive Date: 20131129
  Receipt Date: 20131223
  Transmission Date: 20140711
  Serious: Yes (Hospitalization)
  Sender: FDA-Public Use
  Company Number: SYM-2013-13395

PATIENT
  Age: 73 Year
  Sex: Female

DRUGS (16)
  1. 5 FU [Suspect]
     Indication: COLORECTAL CANCER METASTATIC
     Route: 040
     Dates: start: 20131028, end: 20131028
  2. IRINOTECAN [Suspect]
     Indication: COLORECTAL CANCER METASTATIC
     Route: 041
     Dates: start: 20131028, end: 20131028
  3. LEUCOVORIN (FOLINIC ACID) (SOLUTION FOR INFUSION) (FOLINIC ACID) [Suspect]
     Indication: COLORECTAL CANCER METASTATIC
     Route: 041
     Dates: start: 20131028, end: 20131028
  4. AFLIBERCEPT [Suspect]
     Indication: COLORECTAL CANCER METASTATIC
     Route: 041
     Dates: start: 20131028, end: 20131028
  5. VALSARTAN [Concomitant]
  6. ALLOPURINOL [Concomitant]
  7. HYDROCHLOROTHIAZIDE (HYDROCHLOROTHIAZIDE) [Concomitant]
  8. L-THYROXIN (LEVOTHYROXINE SODIUM) (LEVOTHYROXINE SODIUM) [Concomitant]
  9. DOXAZOSIN (DOXAZOSIN) [Concomitant]
  10. NEBIVOLOL (NEBIVOLOL) [Concomitant]
  11. PANTOPRAZOLE (PANTOPRAZOLE) [Concomitant]
  12. SIMVASTATIN (SIMVASTATIN) [Concomitant]
  13. ACETYLSALICYLIC ACID (ACETYLSALICYLIC ACID) [Concomitant]
  14. FUROSEMIDE (FUROSEMIDE) [Concomitant]
  15. SPIRONOLACTONE (SPIRONOLACTONE) [Concomitant]
  16. DULCOLAX (BISACODYL) (BISACODYL) [Concomitant]

REACTIONS (8)
  - Vomiting [None]
  - Nausea [None]
  - Renal failure [None]
  - Dehydration [None]
  - Diarrhoea [None]
  - White blood cell count decreased [None]
  - Gastritis [None]
  - Gastrointestinal toxicity [None]
